FAERS Safety Report 7956969-1 (Version None)
Quarter: 2011Q4

REPORT INFORMATION
  Report Type: 
  Country: None (occurrence: None)
  Receive Date: 20111205
  Receipt Date: 20111021
  Transmission Date: 20120403
  Serious: No
  Sender: FDA-Public Use
  Company Number: US-BAYER-2011-103710

PATIENT
  Age: 74 Year
  Sex: Male

DRUGS (4)
  1. TRICOR [Concomitant]
  2. SIMVASTATIN [Concomitant]
  3. METOPROLOL [Concomitant]
  4. ALEVE (CAPLET) [Suspect]
     Indication: ANALGESIC THERAPY
     Dosage: 3 DF, QD
     Route: 048

REACTIONS (1)
  - NO ADVERSE EVENT [None]
